FAERS Safety Report 24396609 (Version 2)
Quarter: 2024Q4

REPORT INFORMATION
  Report Type: Report from Study
  Country: BD (occurrence: BD)
  Receive Date: 20241004
  Receipt Date: 20241204
  Transmission Date: 20250115
  Serious: Yes (Death, Hospitalization)
  Sender: ROCHE
  Company Number: BD-ROCHE-10000056125

PATIENT
  Age: 43 Year
  Sex: Male
  Weight: 56 kg

DRUGS (7)
  1. TECENTRIQ [Suspect]
     Active Substance: ATEZOLIZUMAB
     Indication: Hepatocellular carcinoma
     Dosage: LAST CYCLE RECEIVED ON 26-SEP-2024
     Route: 065
     Dates: start: 20240723
  2. TECENTRIQ [Suspect]
     Active Substance: ATEZOLIZUMAB
     Route: 065
  3. TECENTRIQ [Suspect]
     Active Substance: ATEZOLIZUMAB
     Route: 065
  4. AVASTIN [Suspect]
     Active Substance: BEVACIZUMAB
     Indication: Hepatocellular carcinoma
     Dosage: LAST CYCLE RECEIVED ON 26-SEP-2024
     Route: 065
     Dates: start: 20240723
  5. AVASTIN [Suspect]
     Active Substance: BEVACIZUMAB
     Route: 065
  6. MORPHINE [Concomitant]
     Active Substance: MORPHINE
  7. omidon [Concomitant]

REACTIONS (4)
  - Off label use [Unknown]
  - Pain [Unknown]
  - Vomiting [Unknown]
  - Death [Fatal]

NARRATIVE: CASE EVENT DATE: 20240922
